FAERS Safety Report 4710693-7 (Version None)
Quarter: 2005Q3

REPORT INFORMATION
  Report Type: 
  Country: None (occurrence: None)
  Receive Date: 20050711
  Receipt Date: 20050525
  Transmission Date: 20060218
  Serious: Yes (Hospitalization)
  Sender: FDA-Public Use
  Company Number: JP-MERCK-0506USA00371

PATIENT
  Age: 35 Year
  Sex: Male

DRUGS (2)
  1. PEPCID RPD [Suspect]
     Indication: DUODENAL ULCER
     Route: 048
     Dates: start: 20050426, end: 20050525
  2. GASTROM [Concomitant]
     Indication: DUODENAL ULCER
     Route: 048
     Dates: start: 20050323, end: 20050525

REACTIONS (2)
  - BLOOD CREATINE PHOSPHOKINASE INCREASED [None]
  - EXCESSIVE EXERCISE [None]
